FAERS Safety Report 25464132 (Version 1)
Quarter: 2025Q2

REPORT INFORMATION
  Report Type: Spontaneous
  Country: US (occurrence: US)
  Receive Date: 20250621
  Receipt Date: 20250621
  Transmission Date: 20250716
  Serious: No
  Sender: CSL BEHRING
  Company Number: US-BEH-2025209428

PATIENT
  Sex: Female

DRUGS (9)
  1. HIZENTRA [Suspect]
     Active Substance: HUMAN IMMUNOGLOBULIN G
     Indication: Chronic inflammatory demyelinating polyradiculoneuropathy
     Dosage: 30 G, QW
     Route: 058
  2. BACLOFEN [Concomitant]
     Active Substance: BACLOFEN
  3. CLINDAMYCIN [Concomitant]
     Active Substance: CLINDAMYCIN
  4. IMURAN [Concomitant]
     Active Substance: AZATHIOPRINE
  5. IVABRADINE [Concomitant]
     Active Substance: IVABRADINE
  6. PRISTIQ EXTENDED-RELEASE [Concomitant]
     Active Substance: DESVENLAFAXINE SUCCINATE
  7. RITUXAN [Concomitant]
     Active Substance: RITUXIMAB
  8. TIZANIDINE [Concomitant]
     Active Substance: TIZANIDINE
  9. VYVANSE [Concomitant]
     Active Substance: LISDEXAMFETAMINE DIMESYLATE

REACTIONS (1)
  - Injection site swelling [Recovered/Resolved]
